FAERS Safety Report 25420773 (Version 1)
Quarter: 2025Q2

REPORT INFORMATION
  Report Type: Spontaneous
  Country: US (occurrence: US)
  Receive Date: 20250611
  Receipt Date: 20250611
  Transmission Date: 20250717
  Serious: No
  Sender: ELI LILLY AND COMPANY
  Company Number: US-ELI_LILLY_AND_COMPANY-US202506004260

PATIENT
  Age: 56 Year
  Sex: Female

DRUGS (16)
  1. ZEPBOUND [Suspect]
     Active Substance: TIRZEPATIDE
     Indication: Weight control
     Route: 058
     Dates: start: 202505
  2. ZEPBOUND [Suspect]
     Active Substance: TIRZEPATIDE
     Indication: Weight control
     Route: 058
     Dates: start: 202505
  3. ZEPBOUND [Suspect]
     Active Substance: TIRZEPATIDE
     Indication: Weight control
     Route: 058
     Dates: start: 202505
  4. ZEPBOUND [Suspect]
     Active Substance: TIRZEPATIDE
     Indication: Weight control
     Route: 058
     Dates: start: 202505
  5. ZEPBOUND [Suspect]
     Active Substance: TIRZEPATIDE
     Indication: Glucose tolerance impaired
     Dosage: 2.5 MG, WEEKLY (1/W)
     Route: 058
  6. ZEPBOUND [Suspect]
     Active Substance: TIRZEPATIDE
     Indication: Glucose tolerance impaired
     Dosage: 2.5 MG, WEEKLY (1/W)
     Route: 058
  7. ZEPBOUND [Suspect]
     Active Substance: TIRZEPATIDE
     Indication: Glucose tolerance impaired
     Dosage: 2.5 MG, WEEKLY (1/W)
     Route: 058
  8. ZEPBOUND [Suspect]
     Active Substance: TIRZEPATIDE
     Indication: Glucose tolerance impaired
     Dosage: 2.5 MG, WEEKLY (1/W)
     Route: 058
  9. ZEPBOUND [Suspect]
     Active Substance: TIRZEPATIDE
     Indication: Injury
  10. ZEPBOUND [Suspect]
     Active Substance: TIRZEPATIDE
     Indication: Injury
  11. ZEPBOUND [Suspect]
     Active Substance: TIRZEPATIDE
     Indication: Injury
  12. ZEPBOUND [Suspect]
     Active Substance: TIRZEPATIDE
     Indication: Injury
  13. ZEPBOUND [Suspect]
     Active Substance: TIRZEPATIDE
     Indication: Poisoning
  14. ZEPBOUND [Suspect]
     Active Substance: TIRZEPATIDE
     Indication: Poisoning
  15. ZEPBOUND [Suspect]
     Active Substance: TIRZEPATIDE
     Indication: Poisoning
  16. ZEPBOUND [Suspect]
     Active Substance: TIRZEPATIDE
     Indication: Poisoning

REACTIONS (1)
  - Injection site pain [Unknown]
